FAERS Safety Report 24822331 (Version 1)
Quarter: 2025Q1

REPORT INFORMATION
  Report Type: Spontaneous
  Country: US (occurrence: US)
  Receive Date: 20250108
  Receipt Date: 20250108
  Transmission Date: 20250408
  Serious: Yes (Other)
  Sender: ALEXION PHARMACEUTICALS
  Company Number: US-AstraZeneca-CH-00779614A

PATIENT

DRUGS (1)
  1. FARXIGA [Suspect]
     Active Substance: DAPAGLIFLOZIN PROPANEDIOL

REACTIONS (7)
  - Hypotension [Unknown]
  - Chronic kidney disease [Unknown]
  - Dizziness [Unknown]
  - Dysstasia [Unknown]
  - Feeling abnormal [Unknown]
  - Lethargy [Unknown]
  - Asthenia [Unknown]
